FAERS Safety Report 13902360 (Version 1)
Quarter: 2017Q3

REPORT INFORMATION
  Report Type: Spontaneous
  Country: US (occurrence: US)
  Receive Date: 20170824
  Receipt Date: 20170824
  Transmission Date: 20171127
  Serious: Yes (Hospitalization)
  Sender: FDA-Public Use
  Company Number: US-KADMON PHARMACEUTICALS, LLC-KAD201708-000921

PATIENT
  Age: 62 Year
  Sex: Male

DRUGS (5)
  1. FAMOTIDINE. [Concomitant]
     Active Substance: FAMOTIDINE
  2. RIBASPHERE [Suspect]
     Active Substance: RIBAVIRIN
  3. RIBASPHERE [Suspect]
     Active Substance: RIBAVIRIN
     Dates: start: 20121026
  4. PEG-INTERFERON ALFA-2A [Suspect]
     Active Substance: PEGINTERFERON ALFA-2A
     Dosage: PRE-FILLED SYRINGE
     Dates: start: 20121026
  5. MELOXICAM. [Concomitant]
     Active Substance: MELOXICAM

REACTIONS (15)
  - Cholelithiasis [Unknown]
  - Memory impairment [Unknown]
  - Feeling abnormal [Unknown]
  - Gallbladder disorder [Unknown]
  - Diarrhoea [Unknown]
  - Fatigue [Unknown]
  - Fatigue [Unknown]
  - Blood glucose increased [Unknown]
  - Dysarthria [Unknown]
  - Epistaxis [Unknown]
  - Irritability [Unknown]
  - Feeling abnormal [Unknown]
  - Influenza like illness [Unknown]
  - Decreased appetite [Unknown]
  - Irritability [Recovered/Resolved]

NARRATIVE: CASE EVENT DATE: 20121116
